FAERS Safety Report 10360871 (Version 1)
Quarter: 2014Q3

REPORT INFORMATION
  Report Type: Spontaneous
  Country: IT (occurrence: None)
  Receive Date: 20140731
  Receipt Date: 20140731
  Transmission Date: 20150326
  Serious: Yes (Other)
  Sender: FDA-Public Use
  Company Number: AUR-APL-2014-07939

PATIENT
  Age: 27 Year
  Sex: Female

DRUGS (2)
  1. CITALOPRAM ORAL DROPS (CITALOPRAM) DROP [Suspect]
     Active Substance: CITALOPRAM HYDROBROMIDE
     Indication: INSOMNIA
     Dates: start: 20140615, end: 20140616
  2. TAVOR [Suspect]
     Active Substance: LORAZEPAM
     Indication: INSOMNIA
     Route: 048
     Dates: start: 20140615, end: 20140616

REACTIONS (4)
  - Agitation [None]
  - Drug abuse [None]
  - Depression [None]
  - Insomnia [None]

NARRATIVE: CASE EVENT DATE: 20140615
